FAERS Safety Report 7045686-0 (Version None)
Quarter: 2010Q4

REPORT INFORMATION
  Report Type: 
  Country: None (occurrence: None)
  Receive Date: 20101014
  Receipt Date: 20100826
  Transmission Date: 20110411
  Serious: No
  Sender: FDA-Public Use
  Company Number: US-BAYER-201020683BCC

PATIENT
  Sex: Female

DRUGS (1)
  1. ALEVE (CAPLET) [Suspect]
     Indication: PROCEDURAL PAIN
     Route: 065
     Dates: start: 20100812

REACTIONS (1)
  - ABDOMINAL DISCOMFORT [None]
